FAERS Safety Report 18807367 (Version 1)
Quarter: 2021Q1

REPORT INFORMATION
  Report Type: Spontaneous
  Country: US (occurrence: US)
  Receive Date: 20210129
  Receipt Date: 20210129
  Transmission Date: 20210419
  Serious: No
  Sender: FDA-Public Use
  Company Number: US-JNJFOC-20190703056

PATIENT
  Age: 78 Year
  Sex: Female
  Weight: 56.3 kg

DRUGS (1)
  1. IMODIUM A?D [Suspect]
     Active Substance: LOPERAMIDE HYDROCHLORIDE
     Indication: DIARRHOEA
     Dosage: ONE TABLET ONE TIME
     Route: 048
     Dates: end: 20190701

REACTIONS (2)
  - Product blister packaging issue [Unknown]
  - Product label issue [Unknown]
